FAERS Safety Report 6892901-X (Version None)
Quarter: 2010Q3

REPORT INFORMATION
  Report Type: 
  Country: None (occurrence: None)
  Receive Date: 20100731
  Receipt Date: 20081027
  Transmission Date: 20110219
  Serious: No
  Sender: FDA-Public Use
  Company Number: US-PFIZER INC-2008090614

PATIENT
  Sex: Female

DRUGS (1)
  1. DEPO-MEDROL [Suspect]
     Indication: BRONCHITIS
     Dates: start: 20081020, end: 20081020

REACTIONS (2)
  - FATIGUE [None]
  - HYPOTENSION [None]
